FAERS Safety Report 4597839-9 (Version None)
Quarter: 2005Q1

REPORT INFORMATION
  Report Type: 
  Country: None (occurrence: None)
  Receive Date: 20050301
  Receipt Date: 20050221
  Transmission Date: 20050727
  Serious: Yes (Hospitalization)
  Sender: FDA-Public Use
  Company Number: 1314819-2005-00001

PATIENT
  Age: 38 Year
  Sex: Female

DRUGS (1)
  1. DRICLOR (ALUMINUM CHLORIDE HEXAHYDRATE) SOLUTION [Suspect]
     Dates: start: 20050215

REACTIONS (8)
  - BLISTER [None]
  - BURNING SENSATION [None]
  - CHEMICAL BURN OF SKIN [None]
  - ERYTHEMA [None]
  - LOCALISED INFECTION [None]
  - PAIN [None]
  - SKIN IRRITATION [None]
  - SLEEP DISORDER [None]
